FAERS Safety Report 16964938 (Version 1)
Quarter: 2019Q4

REPORT INFORMATION
  Report Type: Spontaneous
  Country: CA (occurrence: CA)
  Receive Date: 20191028
  Receipt Date: 20191028
  Transmission Date: 20200122
  Serious: Yes (Other)
  Sender: FDA-Public Use
  Company Number: CA-AUROBINDO-AUR-APL-2019-068548

PATIENT
  Age: 65 Year
  Sex: Female

DRUGS (7)
  1. ASPIRIN. [Concomitant]
     Active Substance: ASPIRIN
     Indication: PRODUCT USED FOR UNKNOWN INDICATION
     Dosage: UNK
     Route: 065
  2. REACTINE [CETIRIZINE HYDROCHLORIDE] [Concomitant]
     Active Substance: CETIRIZINE HYDROCHLORIDE
     Indication: PRODUCT USED FOR UNKNOWN INDICATION
     Dosage: 20 MILLIGRAM, ONCE A DAY
     Route: 065
  3. VALSARTAN. [Suspect]
     Active Substance: VALSARTAN
     Indication: HYPERTENSION
     Dosage: UNK
     Route: 048
  4. CEFALEXIN [Suspect]
     Active Substance: CEPHALEXIN
     Indication: CELLULITIS
     Dosage: 1 DOSAGE FORM
     Route: 065
  5. ERGOCALCIFEROL. [Concomitant]
     Active Substance: ERGOCALCIFEROL
     Indication: PRODUCT USED FOR UNKNOWN INDICATION
     Dosage: UNK
     Route: 065
  6. CEPHALEXIN. [Suspect]
     Active Substance: CEPHALEXIN
     Indication: CELLULITIS
     Dosage: 2 DOSAGE FORM
     Route: 065
  7. MULTIVITAMIN [Concomitant]
     Active Substance: VITAMINS
     Indication: PRODUCT USED FOR UNKNOWN INDICATION
     Dosage: UNK
     Route: 065

REACTIONS (12)
  - Arthritis [Unknown]
  - Angioedema [Unknown]
  - Paraesthesia [Unknown]
  - Blood cholesterol increased [Unknown]
  - Chronic spontaneous urticaria [Unknown]
  - Urticaria [Unknown]
  - Lip swelling [Unknown]
  - Diabetes mellitus [Unknown]
  - Thyroid disorder [Unknown]
  - Cellulitis [Unknown]
  - Insomnia [Unknown]
  - Pruritus [Unknown]
